FAERS Safety Report 25547693 (Version 2)
Quarter: 2025Q3

REPORT INFORMATION
  Report Type: Spontaneous
  Country: US (occurrence: US)
  Receive Date: 20250714
  Receipt Date: 20250715
  Transmission Date: 20251021
  Serious: No
  Sender: Haleon PLC
  Company Number: US-HALEON-2252228

PATIENT
  Age: 49 Year
  Sex: Male

DRUGS (1)
  1. NICODERM CQ [Suspect]
     Active Substance: NICOTINE
     Indication: Nicotine dependence
     Dates: start: 20250613, end: 20250620

REACTIONS (1)
  - Drug ineffective [Unknown]
